FAERS Safety Report 20569858 (Version 5)
Quarter: 2022Q4

REPORT INFORMATION
  Report Type: Spontaneous
  Country: US (occurrence: US)
  Receive Date: 20220309
  Receipt Date: 20221209
  Transmission Date: 20230112
  Serious: No
  Sender: FDA-Public Use
  Company Number: US-BIOVITRUM-2022US01794

PATIENT
  Age: 10 Year
  Sex: Female

DRUGS (2)
  1. KINERET [Suspect]
     Active Substance: ANAKINRA
     Indication: Relapsing fever
     Dosage: 100MG/0.67ML
     Dates: start: 20220115
  2. KINERET [Suspect]
     Active Substance: ANAKINRA
     Dates: start: 20220115

REACTIONS (5)
  - Gastrooesophageal reflux disease [Unknown]
  - Injection site hypersensitivity [Unknown]
  - Product dose omission issue [Unknown]
  - Needle issue [Unknown]
  - Off label use [Unknown]

NARRATIVE: CASE EVENT DATE: 20220115
